FAERS Safety Report 9670166 (Version 1)
Quarter: 2013Q4

REPORT INFORMATION
  Report Type: Spontaneous
  Country: US (occurrence: None)
  Receive Date: 20131024
  Receipt Date: 20131024
  Transmission Date: 20140711
  Serious: Yes (Other)
  Sender: FDA-Public Use
  Company Number: 2011027944

PATIENT
  Sex: Male
  Weight: 77.57 kg

DRUGS (15)
  1. HIZENTRA (IMMUNOGLOBULIN HUMAN NORMAL) [Suspect]
     Route: 058
     Dates: start: 20101227
  2. FUROSEMIDE (FUROSEMIDE) [Concomitant]
  3. ZOCOR (SIMVASTATIN) [Concomitant]
  4. ASTELIN (DIPROPHYLLINE) [Concomitant]
  5. STARLIX (NATEGLINIDE) [Concomitant]
  6. LISINOPRIL (LISINOPRIL) [Concomitant]
  7. DOXAZOSIN (DOXAZOSIN) [Concomitant]
  8. AMIODARONE (AMIODARONE) [Concomitant]
  9. ASPIRIN (ACETYLSALICYLIC ACID) [Concomitant]
  10. MAG-OX (MAGNESIUM OXIDE) [Concomitant]
  11. ALBUTEROL (SALBUTAMOL) [Concomitant]
  12. VERAMYST (FLUTICASONE) [Concomitant]
  13. METOPROLOL (METOPROLOL) [Concomitant]
  14. LORTAB (VICODIN) [Concomitant]
  15. MULTIVITAMIN (ACCOMIN MULTIVITAMIN) [Concomitant]

REACTIONS (3)
  - Lacrimation increased [None]
  - Sneezing [None]
  - Leukaemia [None]
